FAERS Safety Report 15103423 (Version 5)
Quarter: 2018Q4

REPORT INFORMATION
  Report Type: Report from Study
  Country: GB (occurrence: GB)
  Receive Date: 20180703
  Receipt Date: 20181008
  Transmission Date: 20190204
  Serious: Yes (Death, Hospitalization)
  Sender: FDA-Public Use
  Company Number: GB-JNJFOC-20180610128

PATIENT
  Age: 38 Year
  Sex: Female
  Weight: 104 kg

DRUGS (20)
  1. ZEROCREAM [Concomitant]
     Dosage: USE TWICE DAILY AND AS SOAP SUBSTITUTE
     Route: 065
     Dates: start: 20171016
  2. GABAPENTIN. [Concomitant]
     Active Substance: GABAPENTIN
     Dosage: THREE TO BE TAKEN THREE TIMES A DAY
     Route: 065
     Dates: end: 20180801
  3. HUMULIN M3 [Concomitant]
     Active Substance: INSULIN HUMAN
     Route: 048
  4. RIZATRIPTAN. [Concomitant]
     Active Substance: RIZATRIPTAN
     Indication: MIGRAINE
     Dosage: IF SYMPTOMS COME BACK, TAKE ONE TABLET AT??LEAST TWO HOURS AFTER FIRST DOSE
     Route: 048
     Dates: start: 20180711
  5. FENOFIBRATE. [Concomitant]
     Active Substance: FENOFIBRATE
     Dosage: APPLY TO SKIN OR USE AS A SOAP SUBSTITUTE
     Route: 065
     Dates: end: 20180801
  6. LANSOPRAZOLE. [Concomitant]
     Active Substance: LANSOPRAZOLE
     Dosage: TO TAKE TWO TWICE A 28 CAPSULE A DAY
     Route: 065
     Dates: end: 20180801
  7. STELARA [Suspect]
     Active Substance: USTEKINUMAB
     Indication: PSORIASIS
     Route: 058
  8. LORATADINE. [Concomitant]
     Active Substance: LORATADINE
     Route: 065
     Dates: end: 20180801
  9. CAPASAL [Concomitant]
     Dosage: AS DIRECTED
     Route: 065
     Dates: start: 20171213
  10. SYMBICORT [Concomitant]
     Active Substance: BUDESONIDE\FORMOTEROL FUMARATE DIHYDRATE
     Dosage: TWO PUFFS TO BE INHALED TWICE A DAY
     Route: 065
  11. LORATADINE. [Concomitant]
     Active Substance: LORATADINE
     Route: 065
     Dates: start: 20180711
  12. AMITRIPTYLINE [Concomitant]
     Active Substance: AMITRIPTYLINE
     Dosage: ONE TO BE TAKEN AT NIGHT
     Route: 065
     Dates: end: 20180801
  13. HYDROXYZINE [Concomitant]
     Active Substance: HYDROXYZINE HYDROCHLORIDE
     Dosage: ONE TO BE TAKEN AT 7 TABLET NIGHT
     Route: 048
     Dates: end: 20180801
  14. LINAGLIPTIN [Concomitant]
     Active Substance: LINAGLIPTIN
     Route: 065
     Dates: end: 20180801
  15. STELARA [Suspect]
     Active Substance: USTEKINUMAB
     Indication: PSORIASIS
     Route: 058
     Dates: start: 20160831
  16. CALCIPOTRIOL [Concomitant]
     Active Substance: CALCIPOTRIENE
     Dosage: APPLY ONCE A DAY THE AFFECTED AREAS
     Route: 065
     Dates: start: 20171024
  17. MOMETASONE FUROATE. [Concomitant]
     Active Substance: MOMETASONE FUROATE
     Dosage: TWO SPRAYS TO BE USED IN EACH NOSTRIL TWICE A DAY, THEN REDUCE WHEN SYMPTOMS UNDER CONTROL
     Route: 048
     Dates: start: 20180511
  18. ESCITALOPRAM [Concomitant]
     Active Substance: ESCITALOPRAM OXALATE
     Route: 065
     Dates: start: 20180711
  19. GAVISCON [Concomitant]
     Active Substance: ALUMINUM HYDROXIDE\MAGNESIUM CARBONATE
     Dosage: ONE OR TWO 5ML SPOONFULS TO BE TAKEN AFTER MEALS AND AT BEDTIME
     Route: 065
     Dates: start: 20171211
  20. DERMAL [Concomitant]
     Dosage: APPLY TO SKIN OR USE AS A SOAP SUBSTITUTE
     Route: 065

REACTIONS (8)
  - Ovarian cyst [Recovering/Resolving]
  - Infection [Unknown]
  - Pancreatitis acute [Fatal]
  - Adenomyosis [Unknown]
  - Endometriosis [Unknown]
  - Lower respiratory tract infection [Unknown]
  - Post procedural infection [Unknown]
  - Psoriasis [Unknown]

NARRATIVE: CASE EVENT DATE: 201612
